FAERS Safety Report 4475518-6 (Version None)
Quarter: 2004Q4

REPORT INFORMATION
  Report Type: 
  Country: None (occurrence: None)
  Receive Date: 20041015
  Receipt Date: 20041001
  Transmission Date: 20050328
  Serious: Yes (Life-Threatening, Hospitalization)
  Sender: FDA-Public Use
  Company Number: BR-MERCK-0410BRA00063

PATIENT
  Age: 75 Year
  Sex: Female

DRUGS (3)
  1. CAPTOPRIL [Concomitant]
     Route: 065
  2. DIGOXIN [Concomitant]
     Route: 065
  3. VIOXX [Suspect]
     Indication: ARTHRALGIA
     Route: 048
     Dates: start: 20010101, end: 20040929

REACTIONS (2)
  - CONGESTIVE CARDIOMYOPATHY [None]
  - HYPERTENSIVE CRISIS [None]
